FAERS Safety Report 7501298-3 (Version None)
Quarter: 2011Q2

REPORT INFORMATION
  Report Type: 
  Country: None (occurrence: None)
  Receive Date: 20110524
  Receipt Date: 20110520
  Transmission Date: 20111010
  Serious: Yes (Hospitalization, Other)
  Sender: FDA-Public Use
  Company Number: US-PFIZER INC-2011093176

PATIENT
  Sex: Female
  Weight: 72.562 kg

DRUGS (7)
  1. PREVACID [Concomitant]
     Dosage: UNK
  2. AMBIEN [Concomitant]
     Dosage: UNK
  3. XANAX [Concomitant]
     Dosage: UNK
  4. CHANTIX [Suspect]
     Indication: SMOKING CESSATION THERAPY
     Dosage: 0.5 MG, 1X/DAY
     Route: 048
     Dates: start: 20110420, end: 20110401
  5. PRISTIQ [Concomitant]
     Dosage: UNK
  6. ZOCOR [Concomitant]
     Dosage: UNK
  7. CHANTIX [Suspect]
     Dosage: 0.5 MG, 2X/DAY
     Dates: start: 20110401, end: 20110425

REACTIONS (6)
  - PRESYNCOPE [None]
  - RASH [None]
  - URTICARIA [None]
  - PRURITUS [None]
  - HEART RATE INCREASED [None]
  - WHITE BLOOD CELL COUNT INCREASED [None]
